FAERS Safety Report 6578053-4 (Version None)
Quarter: 2010Q1

REPORT INFORMATION
  Report Type: 
  Country: None (occurrence: None)
  Receive Date: 20100211
  Receipt Date: 20100204
  Transmission Date: 20100710
  Serious: Yes (Hospitalization)
  Sender: FDA-Public Use
  Company Number: US-ELI_LILLY_AND_COMPANY-US200909005332

PATIENT
  Sex: Female
  Weight: 42.3 kg

DRUGS (2)
  1. HUMALOG [Suspect]
     Dosage: UNK, AS NEEDED
     Route: 058
  2. LANTUS [Concomitant]
     Dosage: 18 U, DAILY (1/D)

REACTIONS (5)
  - BLOOD GLUCOSE INCREASED [None]
  - DEHYDRATION [None]
  - DIABETIC KETOACIDOSIS [None]
  - DRUG INEFFECTIVE [None]
  - OROPHARYNGEAL PAIN [None]
